FAERS Safety Report 16766269 (Version 1)
Quarter: 2019Q3

REPORT INFORMATION
  Report Type: Report from Study
  Country: CA (occurrence: CA)
  Receive Date: 20190903
  Receipt Date: 20190903
  Transmission Date: 20191005
  Serious: Yes (Other)
  Sender: FDA-Public Use
  Company Number: CA-BRISTOL-MYERS SQUIBB COMPANY-BMS-2018-078687

PATIENT
  Age: 91 Year
  Sex: Female

DRUGS (5)
  1. MULTIPLE VITAMINS [Concomitant]
     Active Substance: VITAMINS
     Indication: PRODUCT USED FOR UNKNOWN INDICATION
     Route: 065
  2. ABATACEPT [Suspect]
     Active Substance: ABATACEPT
     Indication: RHEUMATOID ARTHRITIS
     Dosage: 500 MG, Q4WK
     Route: 042
     Dates: start: 20180726
  3. FOLIC ACID. [Concomitant]
     Active Substance: FOLIC ACID
     Indication: PRODUCT USED FOR UNKNOWN INDICATION
     Route: 065
  4. MTX [METHOTREXATE] [Concomitant]
     Active Substance: METHOTREXATE SODIUM
     Indication: PRODUCT USED FOR UNKNOWN INDICATION
     Route: 065
  5. PREDNISONE. [Concomitant]
     Active Substance: PREDNISONE
     Indication: PRODUCT USED FOR UNKNOWN INDICATION
     Route: 065

REACTIONS (19)
  - Headache [Unknown]
  - Toothache [Recovering/Resolving]
  - Cough [Unknown]
  - Joint swelling [Recovering/Resolving]
  - Nasopharyngitis [Recovering/Resolving]
  - Aphonia [Recovering/Resolving]
  - Haematocrit decreased [Unknown]
  - Gingival pain [Unknown]
  - Oral pain [Unknown]
  - Platelet count increased [Unknown]
  - Weight decreased [Unknown]
  - Aphthous ulcer [Unknown]
  - Nasal congestion [Unknown]
  - Haemoglobin decreased [Unknown]
  - Oropharyngeal pain [Unknown]
  - Pain in extremity [Unknown]
  - Musculoskeletal chest pain [Recovering/Resolving]
  - Pulmonary fibrosis [Unknown]
  - Stomatitis [Unknown]

NARRATIVE: CASE EVENT DATE: 201808
